FAERS Safety Report 4478875-X (Version None)
Quarter: 2004Q4

REPORT INFORMATION
  Report Type: 
  Country: None (occurrence: None)
  Receive Date: 20041014
  Receipt Date: 20040928
  Transmission Date: 20050328
  Serious: Yes (Other)
  Sender: FDA-Public Use
  Company Number: 2004235874TR

PATIENT
  Age: 25 Year
  Sex: Male

DRUGS (1)
  1. DEPO-MEDROL [Suspect]
     Indication: BEHCET'S SYNDROME
     Dosage: 1000 MG, TID  : 1 MG/KG, QD

REACTIONS (1)
  - BRADYCARDIA [None]
